FAERS Safety Report 9725266 (Version 1)
Quarter: 2013Q4

REPORT INFORMATION
  Report Type: Spontaneous
  Country: US (occurrence: None)
  Receive Date: 20131202
  Receipt Date: 20131202
  Transmission Date: 20140711
  Serious: No
  Sender: FDA-Public Use
  Company Number: None

PATIENT
  Age: 8 Year
  Sex: Female
  Weight: 28.12 kg

DRUGS (1)
  1. METHYLPHENIDATE ER [Suspect]
     Indication: ATTENTION DEFICIT/HYPERACTIVITY DISORDER
     Dosage: 1 TAB  ONCE DAILY  TAKEN BY MOUTH
     Route: 048
     Dates: start: 20130611, end: 20131116

REACTIONS (5)
  - Drug ineffective [None]
  - Product quality issue [None]
  - Product substitution issue [None]
  - Educational problem [None]
  - Social problem [None]
